FAERS Safety Report 8209105-0 (Version None)
Quarter: 2012Q1

REPORT INFORMATION
  Report Type: 
  Country: None (occurrence: None)
  Receive Date: 20120314
  Receipt Date: 20120229
  Transmission Date: 20120608
  Serious: Yes (Other)
  Sender: FDA-Public Use
  Company Number: US-SANOFI-AVENTIS-2012SA013909

PATIENT
  Sex: Male
  Weight: 91.17 kg

DRUGS (11)
  1. ATORVASTATIN [Concomitant]
  2. FAMOTIDINE [Concomitant]
  3. ASPIRIN [Suspect]
  4. CELEXA [Concomitant]
  5. AMLODIPINE [Concomitant]
  6. PLAVIX [Suspect]
     Indication: STENT PLACEMENT
     Route: 048
     Dates: start: 20120201
  7. NEBIVOLOL [Concomitant]
  8. PLAVIX [Suspect]
     Route: 048
     Dates: start: 20120201
  9. LISINOPRIL AND HYDROCHLOROTHIAZIDE [Concomitant]
  10. ISOSORBIDE DINITRATE [Concomitant]
  11. LEVOTHYROXINE SODIUM [Concomitant]

REACTIONS (15)
  - SLEEP DISORDER [None]
  - SINUSITIS [None]
  - DEPRESSED MOOD [None]
  - WEIGHT DECREASED [None]
  - RESTLESSNESS [None]
  - ABNORMAL BEHAVIOUR [None]
  - SKIN DISCOLOURATION [None]
  - POST-TRAUMATIC STRESS DISORDER [None]
  - IRRITABILITY [None]
  - URINE OUTPUT DECREASED [None]
  - DYSKINESIA [None]
  - VASCULAR OCCLUSION [None]
  - CRYING [None]
  - PERSONALITY CHANGE [None]
  - CONTUSION [None]
